FAERS Safety Report 6468512-7 (Version None)
Quarter: 2009Q4

REPORT INFORMATION
  Report Type: 
  Country: None (occurrence: None)
  Receive Date: 20091203
  Receipt Date: 20091125
  Transmission Date: 20100525
  Serious: Yes (Hospitalization)
  Sender: FDA-Public Use
  Company Number: JP-JNJFOC-20081001284

PATIENT
  Sex: Male
  Weight: 45 kg

DRUGS (17)
  1. ITRIZOLE [Suspect]
     Route: 048
     Dates: start: 20080723
  2. ITRIZOLE [Suspect]
     Route: 048
     Dates: start: 20080723
  3. ITRIZOLE [Suspect]
     Route: 048
     Dates: start: 20080723
  4. ITRIZOLE [Suspect]
     Indication: BRONCHOPULMONARY ASPERGILLOSIS
     Dosage: 200 MG TWICE A DAY
     Route: 048
     Dates: start: 20080723
  5. ITRIZOLE [Suspect]
     Route: 041
     Dates: start: 20080710, end: 20080722
  6. SPIRONOLACTONE [Suspect]
     Route: 065
     Dates: start: 20091026, end: 20091109
  7. SPIRONOLACTONE [Suspect]
     Route: 065
     Dates: start: 20091026, end: 20091109
  8. SPIRONOLACTONE [Suspect]
     Indication: DRUG USE FOR UNKNOWN INDICATION
     Route: 065
     Dates: start: 20091026, end: 20091109
  9. VALSARTAN [Suspect]
     Indication: DRUG USE FOR UNKNOWN INDICATION
     Route: 065
     Dates: start: 20091030, end: 20091107
  10. GASMOTIN [Concomitant]
     Indication: DECREASED APPETITE
     Route: 048
  11. URSO 250 [Concomitant]
     Indication: BILIARY CIRRHOSIS PRIMARY
     Route: 048
  12. COLD MEDICINE [Concomitant]
     Indication: NASOPHARYNGITIS
     Route: 065
  13. MEDICON [Concomitant]
     Route: 048
     Dates: start: 20090713
  14. AMOBAN [Concomitant]
     Indication: INSOMNIA
     Route: 048
     Dates: start: 20090806
  15. CLARITH [Concomitant]
     Route: 048
     Dates: start: 20091007
  16. PURSENNID [Concomitant]
     Indication: CONSTIPATION
     Route: 048
  17. CODEINE PHOSPHATE [Concomitant]
     Indication: BRONCHOPULMONARY ASPERGILLOSIS
     Route: 048
     Dates: start: 20090624

REACTIONS (10)
  - BLOOD CREATININE INCREASED [None]
  - DECREASED APPETITE [None]
  - DRUG INEFFECTIVE [None]
  - ELECTROCARDIOGRAM QT PROLONGED [None]
  - FATIGUE [None]
  - HEADACHE [None]
  - MALAISE [None]
  - NAUSEA [None]
  - PALPITATIONS [None]
  - PSEUDOALDOSTERONISM [None]
